FAERS Safety Report 9158737 (Version 1)
Quarter: 2013Q1

REPORT INFORMATION
  Report Type: Report from Study
  Country: US (occurrence: US)
  Receive Date: 20130312
  Receipt Date: 20130312
  Transmission Date: 20140127
  Serious: Yes (Hospitalization, Other)
  Sender: FDA-Public Use
  Company Number: US-TEVA-391096USA

PATIENT
  Age: 72 Year
  Sex: Female
  Weight: 70.4 kg

DRUGS (13)
  1. TREANDA [Suspect]
     Indication: MANTLE CELL LYMPHOMA
     Route: 042
     Dates: start: 20130103
  2. RITUXIMAB [Suspect]
     Indication: MANTLE CELL LYMPHOMA
     Route: 042
     Dates: start: 20130103
  3. IBRUTINIB [Suspect]
     Indication: MANTLE CELL LYMPHOMA
     Dosage: 560 MILLIGRAM DAILY;
     Route: 048
     Dates: start: 20130103
  4. ASPIRIN [Concomitant]
  5. VALACICLOVIR [Concomitant]
  6. OMEPRAZOLE [Concomitant]
  7. LORAZEPAM [Concomitant]
  8. TRAMADOL [Concomitant]
  9. PROCHLORPERAZINE [Concomitant]
  10. RISEDRONATE [Concomitant]
  11. IBUPROFEN [Concomitant]
  12. ACETAMINOPHEN [Concomitant]
  13. COLECALCIFEROL [Concomitant]

REACTIONS (3)
  - Hypertension [Recovered/Resolved]
  - Headache [Recovered/Resolved]
  - Hypokalaemia [Recovered/Resolved]
